FAERS Safety Report 20921642 (Version 1)
Quarter: 2022Q2

REPORT INFORMATION
  Report Type: Other
  Country: EG (occurrence: None)
  Receive Date: 20220606
  Receipt Date: 20220606
  Transmission Date: 20220721
  Serious: Yes (Other)
  Sender: FDA-Public Use
  Company Number: EG-ROCHE-3039310

PATIENT
  Age: 41 Year
  Sex: Female

DRUGS (1)
  1. OCREVUS [Suspect]
     Active Substance: OCRELIZUMAB
     Indication: Multiple sclerosis
     Route: 042

REACTIONS (5)
  - Hypokinesia [Recovering/Resolving]
  - Bedridden [Recovering/Resolving]
  - Gait disturbance [Unknown]
  - Sensory loss [Unknown]
  - Syncope [Unknown]

NARRATIVE: CASE EVENT DATE: 20211216
